FAERS Safety Report 9056531 (Version 2)
Quarter: 2013Q1

REPORT INFORMATION
  Report Type: Spontaneous
  Country: US (occurrence: US)
  Receive Date: 20130204
  Receipt Date: 20130226
  Transmission Date: 20140127
  Serious: Yes (Hospitalization)
  Sender: FDA-Public Use
  Company Number: US-GLAXOSMITHKLINE-A1010648A

PATIENT
  Age: 60 Year
  Sex: Female

DRUGS (1)
  1. ADVAIR [Suspect]
     Route: 055
     Dates: start: 20100729

REACTIONS (2)
  - Chronic obstructive pulmonary disease [Unknown]
  - Treatment noncompliance [Unknown]
